FAERS Safety Report 7352922-X (Version None)
Quarter: 2011Q1

REPORT INFORMATION
  Report Type: 
  Country: None (occurrence: None)
  Receive Date: 20110315
  Receipt Date: 20110304
  Transmission Date: 20110831
  Serious: Yes (Life-Threatening)
  Sender: FDA-Public Use
  Company Number: US-ROCHE-764655

PATIENT
  Sex: Female

DRUGS (1)
  1. KLONOPIN [Suspect]
     Route: 065
     Dates: start: 20040101

REACTIONS (1)
  - NEUROTOXICITY [None]
